FAERS Safety Report 4838551-8 (Version None)
Quarter: 2005Q4

REPORT INFORMATION
  Report Type: 
  Country: None (occurrence: None)
  Receive Date: 20051123
  Receipt Date: 20051123
  Transmission Date: 20060501
  Serious: Yes (Other)
  Sender: FDA-Public Use
  Company Number: None

PATIENT
  Age: 33 Year
  Sex: Female
  Weight: 62.5964 kg

DRUGS (3)
  1. LORAZEPAM [Suspect]
     Indication: ANXIETY DISORDER
     Dosage: .50 MG 4 TIMES @ NIGHT
     Dates: start: 20051121, end: 20051231
  2. LORAZEPAM [Suspect]
     Indication: BIPOLAR DISORDER
     Dosage: .50 MG 4 TIMES @ NIGHT
     Dates: start: 20051121, end: 20051231
  3. LORAZEPAM [Suspect]
     Indication: SLEEP DISORDER
     Dosage: .50 MG 4 TIMES @ NIGHT
     Dates: start: 20051121, end: 20051231

REACTIONS (5)
  - DRUG INEFFECTIVE [None]
  - ECONOMIC PROBLEM [None]
  - PHARMACEUTICAL PRODUCT COMPLAINT [None]
  - THERAPEUTIC RESPONSE UNEXPECTED WITH DRUG SUBSTITUTION [None]
  - WRONG TECHNIQUE IN DRUG USAGE PROCESS [None]
